FAERS Safety Report 6827093-6 (Version None)
Quarter: 2010Q3

REPORT INFORMATION
  Report Type: 
  Country: None (occurrence: None)
  Receive Date: 20100709
  Receipt Date: 20100630
  Transmission Date: 20110219
  Serious: Yes (Hospitalization)
  Sender: FDA-Public Use
  Company Number: FR-ALLERGAN-1008762US

PATIENT
  Age: 85 Year
  Sex: Female

DRUGS (2)
  1. TROSPIUM CHLORIDE UNK [Suspect]
     Indication: PRODUCT USED FOR UNKNOWN INDICATION
     Dosage: 2 X 20 MG / 1 DAY
     Route: 048
     Dates: start: 20100528, end: 20100603
  2. TERCIAN [Suspect]
     Indication: PRODUCT USED FOR UNKNOWN INDICATION
     Dosage: 15 GTT, PRN
     Route: 048

REACTIONS (4)
  - ABDOMINAL PAIN [None]
  - CONSTIPATION [None]
  - DRY MOUTH [None]
  - SUBILEUS [None]
